FAERS Safety Report 24993070 (Version 3)
Quarter: 2025Q1

REPORT INFORMATION
  Report Type: Report from Study
  Country: KR (occurrence: KR)
  Receive Date: 20250221
  Receipt Date: 20250327
  Transmission Date: 20250409
  Serious: Yes (Hospitalization, Other)
  Sender: ALEXION PHARMACEUTICALS
  Company Number: KR-ASTRAZENECA-202502KOR010611KR

PATIENT
  Age: 54 Year
  Weight: 51.5 kg

DRUGS (21)
  1. RAVULIZUMAB [Suspect]
     Active Substance: RAVULIZUMAB
     Indication: Neuromyelitis optica spectrum disorder
     Dosage: 3000 MILLIGRAM, Q8W
  2. RITUXIMAB [Suspect]
     Active Substance: RITUXIMAB
     Indication: Neuromyelitis optica spectrum disorder
     Route: 065
  3. Rovazet [Concomitant]
     Dosage: 10/5 DOSAGE FORM, QD, AFTER MEALS 12 DAYS
  4. Rovazet [Concomitant]
     Dosage: 10/5 DOSAGE FORM, QD PC (22 DAYS)
  5. Fexuclue [Concomitant]
     Dosage: 40 MILLIGRAM, 1 DOSAGE FORM, QD, AFTER MEALS 12 DAYS
  6. Fexuclue [Concomitant]
     Dosage: 40 MILLIGRAM, 1T QD PC (22 DAYS)
  7. Twolion [Concomitant]
     Dosage: 10 MILLIGRAM, BID, AFTER FOOD FOR 12 DAYS
  8. LYRICA [Concomitant]
     Active Substance: PREGABALIN
     Dosage: 75 MILLIGRAM, BID, FOR 12 DAYS
  9. LYRICA [Concomitant]
     Active Substance: PREGABALIN
     Dosage: 75 MILLIGRAM, 1C BID PC (22 DAYS)
  10. Solondo [Concomitant]
     Route: 065
  11. Solondo [Concomitant]
     Dosage: 5 MILLIGRAM,1.5T QD PC (22 DAYS)
     Route: 065
  12. CLONAZEPAM [Concomitant]
     Active Substance: CLONAZEPAM
     Dosage: 0.5 MILLIGRAM, QHS, FOR 12 DAYS
  13. CLONAZEPAM [Concomitant]
     Active Substance: CLONAZEPAM
     Dosage: 0.5 MILLIGRAM,0.5T QD HS (22 DAYS)
  14. ULTRACET [Concomitant]
     Active Substance: ACETAMINOPHEN\TRAMADOL HYDROCHLORIDE
     Dosage: 1 DOSAGE FORM, TID, AFTER FOOD, 18.75MG/162.5MG, 12 DAYS
  15. MAGNESIUM HYDROXIDE [Concomitant]
     Active Substance: MAGNESIUM HYDROXIDE
     Dosage: 500 MILLIGRAM, TID, AFTER FOOD FOR 12 DAYS
  16. MAGNESIUM HYDROXIDE [Concomitant]
     Active Substance: MAGNESIUM HYDROXIDE
     Dosage: 500 MILLIGRAM, 1T TID PC (22 DAYS)
  17. HYDROXYCHLOROQUINE [Concomitant]
     Active Substance: HYDROXYCHLOROQUINE
     Dosage: 200 MILLIGRAM, BID
     Route: 065
  18. URSODIOL [Concomitant]
     Active Substance: URSODIOL
     Dosage: 100 MILLIGRAM, 1T TID PC (22 DAYS)
     Route: 065
  19. MINOCIN [Concomitant]
     Active Substance: MINOCYCLINE HYDROCHLORIDE
     Dosage: 1TAB, BID
     Route: 065
  20. MINOCIN [Concomitant]
     Active Substance: MINOCYCLINE HYDROCHLORIDE
     Dosage: UNK,1C BID Q12H (22 DAYS)
     Route: 065
  21. Allerginon [Concomitant]
     Dosage: 10 MILLIGRAM,1T QD P PC (22 DAYS)
     Route: 065

REACTIONS (11)
  - Herpes zoster meningitis [Recovering/Resolving]
  - Herpes zoster disseminated [Recovering/Resolving]
  - Neuromyelitis optica spectrum disorder [Recovering/Resolving]
  - Headache [Recovering/Resolving]
  - Pyrexia [Recovering/Resolving]
  - Chills [Recovering/Resolving]
  - Pruritus [Recovering/Resolving]
  - Urinary tract disorder [Unknown]
  - C-reactive protein [Unknown]
  - Adenosine deaminase increased [Unknown]
  - Phlebitis [Unknown]
